FAERS Safety Report 21497093 (Version 1)
Quarter: 2022Q4

REPORT INFORMATION
  Report Type: Spontaneous
  Country: US (occurrence: US)
  Receive Date: 20221023
  Receipt Date: 20221023
  Transmission Date: 20230112
  Serious: No
  Sender: FDA-Public Use
  Company Number: US-JNJFOC-20221012459

PATIENT
  Age: 63 Year
  Sex: Female
  Weight: 88.530 kg

DRUGS (1)
  1. TREMFYA [Suspect]
     Active Substance: GUSELKUMAB
     Indication: Psoriasis
     Route: 065
     Dates: start: 20220825

REACTIONS (1)
  - Cough [Unknown]

NARRATIVE: CASE EVENT DATE: 20221006
